FAERS Safety Report 15975040 (Version 1)
Quarter: 2019Q1

REPORT INFORMATION
  Report Type: Spontaneous
  Country: US (occurrence: US)
  Receive Date: 20190218
  Receipt Date: 20190218
  Transmission Date: 20190418
  Serious: No
  Sender: FDA-Public Use
  Company Number: US-PFIZER INC-2019069857

PATIENT
  Age: 43 Year
  Sex: Male

DRUGS (1)
  1. GENOTROPIN [Suspect]
     Active Substance: SOMATROPIN
     Dosage: 0.1 MG, DAILY

REACTIONS (16)
  - Blood alkaline phosphatase decreased [Unknown]
  - Blood 25-hydroxycholecalciferol increased [Unknown]
  - Mean cell haemoglobin concentration increased [Unknown]
  - Immunoglobulins increased [Unknown]
  - Lymphocyte percentage decreased [Unknown]
  - White blood cell count increased [Unknown]
  - Mean cell haemoglobin increased [Unknown]
  - Blood sodium decreased [Unknown]
  - Total cholesterol/HDL ratio decreased [Unknown]
  - Non-high-density lipoprotein cholesterol increased [Unknown]
  - Granulocyte count increased [Unknown]
  - Low density lipoprotein increased [Unknown]
  - Blood thyroid stimulating hormone decreased [Unknown]
  - Cortisol increased [Unknown]
  - Blood chloride decreased [Unknown]
  - Blood osmolarity decreased [Unknown]

NARRATIVE: CASE EVENT DATE: 20181130
